FAERS Safety Report 8252435-7 (Version None)
Quarter: 2012Q2

REPORT INFORMATION
  Report Type: 
  Country: None (occurrence: None)
  Receive Date: 20120402
  Receipt Date: 20110804
  Transmission Date: 20120825
  Serious: No
  Sender: FDA-Public Use
  Company Number: US-ABBOTT-11P-163-0836065-00

PATIENT
  Sex: Male
  Weight: 136.2 kg

DRUGS (2)
  1. ANDROGEL [Suspect]
     Indication: BLOOD TESTOSTERONE DECREASED
     Dates: start: 20110401
  2. ANDROGEL [Suspect]
     Indication: DISTURBANCE IN SEXUAL AROUSAL

REACTIONS (4)
  - PAIN [None]
  - DRUG INEFFECTIVE [None]
  - DISTURBANCE IN SEXUAL AROUSAL [None]
  - ACNE [None]
